FAERS Safety Report 16017944 (Version 1)
Quarter: 2019Q1

REPORT INFORMATION
  Report Type: Spontaneous
  Country: FR (occurrence: FR)
  Receive Date: 20190228
  Receipt Date: 20190228
  Transmission Date: 20190418
  Serious: Yes (Other)
  Sender: FDA-Public Use
  Company Number: FR-LANNETT COMPANY, INC.-FR-2019LAN000174

PATIENT
  Age: 78 Year
  Sex: Male

DRUGS (7)
  1. NEOMYCIN SULFATE. [Suspect]
     Active Substance: NEOMYCIN SULFATE
     Indication: OPEN ANGLE GLAUCOMA
     Dosage: UNK, BID
     Route: 061
  2. ACETAZOLAMIDE. [Suspect]
     Active Substance: ACETAZOLAMIDE
     Indication: OPEN ANGLE GLAUCOMA
     Dosage: 250 MG, 1/2 X 3
     Route: 048
  3. TIMOLOL + DORZOLAMIDA ACTAVIS [Suspect]
     Active Substance: DORZOLAMIDE HYDROCHLORIDE\TIMOLOL MALEATE
     Indication: OPEN ANGLE GLAUCOMA
     Dosage: UNK, BID
     Route: 061
  4. BRIMONIDINE [Suspect]
     Active Substance: BRIMONIDINE TARTRATE
     Indication: OPEN ANGLE GLAUCOMA
     Dosage: UNK, BID
     Route: 061
  5. LATANOPROST. [Suspect]
     Active Substance: LATANOPROST
     Indication: OPEN ANGLE GLAUCOMA
     Dosage: UNK, QD
     Route: 061
  6. PILOCARPINE HYDROCHLORIDE. [Suspect]
     Active Substance: PILOCARPINE HYDROCHLORIDE
     Indication: OPEN ANGLE GLAUCOMA
     Dosage: 1 %, BID
     Route: 061
  7. DEXAMETHASONE. [Suspect]
     Active Substance: DEXAMETHASONE
     Indication: OPEN ANGLE GLAUCOMA
     Dosage: UNK, BID
     Route: 061

REACTIONS (5)
  - Open angle glaucoma [Recovering/Resolving]
  - Drug ineffective [Unknown]
  - Toxicity to various agents [Recovering/Resolving]
  - Ocular surface disease [Recovering/Resolving]
  - Condition aggravated [Recovering/Resolving]
